FAERS Safety Report 9847428 (Version 1)
Quarter: 2014Q1

REPORT INFORMATION
  Report Type: Spontaneous
  Country: US (occurrence: US)
  Receive Date: 20140127
  Receipt Date: 20140127
  Transmission Date: 20141002
  Serious: No
  Sender: FDA-Public Use
  Company Number: US-009507513-1401USA008169

PATIENT
  Age: 17 Year
  Sex: Female
  Weight: 43.84 kg

DRUGS (2)
  1. NEXPLANON [Suspect]
     Indication: CONTRACEPTION
     Dosage: 1 DF, UNK
     Route: 059
     Dates: start: 20130613
  2. NEXPLANON [Suspect]
     Indication: DYSMENORRHOEA

REACTIONS (2)
  - Haemorrhage [Not Recovered/Not Resolved]
  - Device kink [Not Recovered/Not Resolved]
